FAERS Safety Report 7870443-2 (Version None)
Quarter: 2011Q4

REPORT INFORMATION
  Report Type: 
  Country: None (occurrence: None)
  Receive Date: 20111029
  Receipt Date: 20110310
  Transmission Date: 20120403
  Serious: No
  Sender: FDA-Public Use
  Company Number: US-AMGEN-USASP2011013505

PATIENT
  Age: 38 Year
  Sex: Male

DRUGS (1)
  1. ENBREL [Suspect]
     Indication: ANKYLOSING SPONDYLITIS
     Dosage: 50 MG, QWK
     Dates: start: 20101013

REACTIONS (5)
  - FEELING HOT [None]
  - ERYTHEMA [None]
  - PYREXIA [None]
  - RASH MACULAR [None]
  - OROPHARYNGEAL PAIN [None]
